FAERS Safety Report 5313025-9 (Version None)
Quarter: 2007Q2

REPORT INFORMATION
  Report Type: 
  Country: None (occurrence: None)
  Receive Date: 20070424
  Receipt Date: 20070420
  Transmission Date: 20071010
  Serious: Yes (Disabling)
  Sender: FDA-Public Use
  Company Number: 2007SP001435

PATIENT
  Age: 46 Year
  Sex: Male
  Weight: 72.5755 kg

DRUGS (4)
  1. LUNESTA [Suspect]
     Indication: INSOMNIA
     Dosage: 2 MG; HS; ORAL
     Route: 048
     Dates: start: 20060901, end: 20070101
  2. NORCO [Concomitant]
  3. TRAMADOL HCL [Concomitant]
  4. IBUPROFEN [Concomitant]

REACTIONS (5)
  - ANGER [None]
  - BELLIGERENCE [None]
  - HALLUCINATION [None]
  - MEMORY IMPAIRMENT [None]
  - UNEVALUABLE EVENT [None]
